FAERS Safety Report 6526478-5 (Version None)
Quarter: 2009Q4

REPORT INFORMATION
  Report Type: 
  Country: None (occurrence: None)
  Receive Date: 20091214
  Receipt Date: 20081028
  Transmission Date: 20100525
  Serious: Yes (Other)
  Sender: FDA-Public Use
  Company Number: 594632

PATIENT
  Age: 56 Year
  Sex: Male
  Weight: 82.6 kg

DRUGS (10)
  1. PEGASYS [Suspect]
     Indication: HEPATITIS C
     Dosage: 180 UG 1 PER WEEK SUBCUTANEOUS
     Route: 058
     Dates: start: 20080620
  2. COPEGUS [Suspect]
     Indication: HEPATITIS C
     Dosage: 1000 MG DAILY
  3. RIBASPHERE [Suspect]
     Dosage: 600 MG 2 PER DAY ORAL
     Route: 048
     Dates: start: 20080620
  4. ATIVAN [Concomitant]
  5. AMBIEN [Concomitant]
  6. CELEXA [Concomitant]
  7. ADVAIR DISKUS (FLUTICASONE PROPIONATE/SALMETEROL XINAFOATE) [Concomitant]
  8. PROVENTIL [Concomitant]
  9. MULTI VITAMIN (MULTIVIITAMIN NOS) [Concomitant]
  10. FLUTICASONE PROPIONATE [Concomitant]

REACTIONS (8)
  - ALOPECIA [None]
  - ANXIETY [None]
  - DECREASED APPETITE [None]
  - FATIGUE [None]
  - INSOMNIA [None]
  - RASH PRURITIC [None]
  - SKIN ULCER [None]
  - STOMATITIS [None]
